FAERS Safety Report 9174574 (Version 3)
Quarter: 2013Q3

REPORT INFORMATION
  Report Type: Spontaneous
  Country: US (occurrence: US)
  Receive Date: 20130320
  Receipt Date: 20130807
  Transmission Date: 20140515
  Serious: Yes (Hospitalization)
  Sender: FDA-Public Use
  Company Number: US-PFIZER INC-2013088247

PATIENT
  Age: 57 Year
  Sex: Male
  Weight: 98.41 kg

DRUGS (6)
  1. REVATIO [Suspect]
     Indication: PULMONARY HYPERTENSION
     Dosage: 20 MG, 3X/DAY
     Route: 048
     Dates: start: 201207
  2. REVATIO [Suspect]
     Indication: SCLERODERMA
  3. IMURAN [Concomitant]
     Indication: CHRONIC OBSTRUCTIVE PULMONARY DISEASE
     Dosage: 100 MG, 1X/DAY (2 TABLET 50MG EACH)
  4. IMURAN [Concomitant]
     Indication: PULMONARY ARTERIAL HYPERTENSION
  5. IMURAN [Concomitant]
     Indication: EMPHYSEMA
  6. IMURAN [Concomitant]
     Indication: INTERSTITIAL LUNG DISEASE

REACTIONS (5)
  - Pneumonia [Unknown]
  - Respiratory moniliasis [Unknown]
  - Pain [Unknown]
  - Spinal fracture [Recovering/Resolving]
  - Off label use [Unknown]
